FAERS Safety Report 4879535-3 (Version None)
Quarter: 2006Q1

REPORT INFORMATION
  Report Type: 
  Country: None (occurrence: None)
  Receive Date: 20060111
  Receipt Date: 20060104
  Transmission Date: 20060701
  Serious: Yes (Hospitalization)
  Sender: FDA-Public Use
  Company Number: FRWYE423725NOV03

PATIENT
  Age: 79 Year
  Sex: Female

DRUGS (8)
  1. TAZOCILLINE (PIPERACILLIN/TAZOBACTAM, INJECTION) [Suspect]
     Dosage: 4 G 3X PER 1 DAY; INTRAVENOUS
     Route: 042
     Dates: start: 20030927, end: 20031002
  2. AMIKACIN [Suspect]
     Dosage: 750 MG 1X PER 1 DAY; INTRAVENOUS
     Route: 042
     Dates: start: 20030927, end: 20031002
  3. VALPROATE SODIUM [Suspect]
     Dosage: 2 G 1X PER 1 DAY; INTRAVENOUS
     Route: 042
     Dates: start: 20030912, end: 20031002
  4. VALPROIC ACID [Suspect]
     Dosage: 500 MG 2X PER 1 DAY; ORAL
     Route: 048
     Dates: start: 20030910, end: 20030912
  5. VANCOCIN HCL [Suspect]
     Dosage: 1500 MG 1X PER 1 DAY; INTRAVENOUS
     Route: 042
     Dates: start: 20030927, end: 20031001
  6. VANCOCIN HCL [Suspect]
     Dosage: 2 G 1X PER 1 DAY; INTRAVENOUS
     Route: 042
     Dates: start: 20031002, end: 20031002
  7. CLINDAMYCIN PHOSPHATE [Concomitant]
  8. CLINDAMYCIN PHOSPHATE [Concomitant]

REACTIONS (4)
  - CIRCULATORY COLLAPSE [None]
  - ENCEPHALOPATHY [None]
  - MUTISM [None]
  - QUADRIPARESIS [None]
